FAERS Safety Report 22869096 (Version 6)
Quarter: 2024Q2

REPORT INFORMATION
  Report Type: Report from Study
  Country: US (occurrence: US)
  Receive Date: 20230825
  Receipt Date: 20240410
  Transmission Date: 20240716
  Serious: Yes (Hospitalization, Disabling, Other)
  Sender: FDA-Public Use
  Company Number: US-HORIZON THERAPEUTICS-HZN-2023-001272

PATIENT

DRUGS (24)
  1. TEPEZZA [Suspect]
     Active Substance: TEPROTUMUMAB-TRBW
     Indication: Graves^ disease
     Dosage: FIRST INFUSION 880 MG (FIRST COURSE)
     Route: 042
     Dates: start: 20200903
  2. TEPEZZA [Suspect]
     Active Substance: TEPROTUMUMAB-TRBW
     Indication: Endocrine ophthalmopathy
     Dosage: SECOND INFUSION 1740 MG (FIRST COURSE)
     Route: 042
     Dates: start: 20200924
  3. TEPEZZA [Suspect]
     Active Substance: TEPROTUMUMAB-TRBW
     Dosage: THIRD INFUSION 1760 MG (FIRST COURSE)
     Route: 042
     Dates: start: 20201015
  4. TEPEZZA [Suspect]
     Active Substance: TEPROTUMUMAB-TRBW
     Dosage: FOURTH INFUSION 1700 MG (FIRST COURSE)
     Route: 042
     Dates: start: 20201105
  5. TEPEZZA [Suspect]
     Active Substance: TEPROTUMUMAB-TRBW
     Dosage: FIFTH INFUSION 1700 MG (FIRST COURSE)
     Dates: start: 20201202
  6. TEPEZZA [Suspect]
     Active Substance: TEPROTUMUMAB-TRBW
     Dosage: SIXTH INFUSION 1660MG (FIRST COURSE)
     Route: 042
     Dates: start: 20201223
  7. TEPEZZA [Suspect]
     Active Substance: TEPROTUMUMAB-TRBW
     Dosage: SEVENTH INFUSION 1600 MG (FIRST COURSE)
     Route: 042
     Dates: start: 20210201
  8. TEPEZZA [Suspect]
     Active Substance: TEPROTUMUMAB-TRBW
     Dosage: EIGHTH INFUSION 1540 MG (FIRST COURSE)
     Route: 042
     Dates: start: 20210308
  9. TEPEZZA [Suspect]
     Active Substance: TEPROTUMUMAB-TRBW
     Dosage: FIRST INFUSION 770 MG (SECOND COURSE)
     Route: 042
     Dates: start: 20221115
  10. TEPEZZA [Suspect]
     Active Substance: TEPROTUMUMAB-TRBW
     Dosage: SECOND INFUSION 1440 MG (SECOND COURSE)
     Route: 042
     Dates: start: 20221206
  11. TEPEZZA [Suspect]
     Active Substance: TEPROTUMUMAB-TRBW
     Dosage: THIRD INFUSION 1500 MG (SECOND COURSE)
     Route: 042
     Dates: start: 20231227
  12. TEPEZZA [Suspect]
     Active Substance: TEPROTUMUMAB-TRBW
     Dosage: FOURTH INFUSION 1480 MG (SECOND COURSE)
     Route: 042
     Dates: start: 20230117
  13. TEPEZZA [Suspect]
     Active Substance: TEPROTUMUMAB-TRBW
     Dosage: FIFTH INFUSION 1500 MG (SECOND COURSE)
     Route: 042
     Dates: start: 20230207, end: 202302
  14. TRESIBA [Concomitant]
     Active Substance: INSULIN DEGLUDEC
  15. BYDUREON [Concomitant]
     Active Substance: EXENATIDE
     Dosage: UNK
  16. METFORMIN [Concomitant]
     Active Substance: METFORMIN HYDROCHLORIDE
  17. SYNTHROID [Concomitant]
     Active Substance: LEVOTHYROXINE SODIUM
  18. DOXYCYCLINE [Concomitant]
     Active Substance: DOXYCYCLINE
     Dosage: UNK UNK, BID
  19. CYMBALTA [Concomitant]
     Active Substance: DULOXETINE HYDROCHLORIDE
  20. TRAZODONE [Concomitant]
     Active Substance: TRAZODONE HYDROCHLORIDE
  21. PLAVIX [Concomitant]
     Active Substance: CLOPIDOGREL BISULFATE
  22. PROTONIX [Concomitant]
     Active Substance: PANTOPRAZOLE SODIUM
  23. CRESTOR [Concomitant]
     Active Substance: ROSUVASTATIN CALCIUM
  24. NOVOLOG [Concomitant]
     Active Substance: INSULIN ASPART

REACTIONS (40)
  - Deafness permanent [Not Recovered/Not Resolved]
  - Physical disability [Unknown]
  - Disability [Unknown]
  - Neuropathy peripheral [Unknown]
  - Diabetes mellitus [Unknown]
  - Urinary tract infection [Unknown]
  - Pneumonia [Unknown]
  - Adverse drug reaction [Unknown]
  - Pain [Unknown]
  - Injury [Unknown]
  - Anxiety [Unknown]
  - Concomitant disease aggravated [Unknown]
  - Discomfort [Unknown]
  - Impaired quality of life [Not Recovered/Not Resolved]
  - Emotional distress [Not Recovered/Not Resolved]
  - Auditory disorder [Not Recovered/Not Resolved]
  - Muscle spasms [Unknown]
  - Tinnitus [Not Recovered/Not Resolved]
  - Diplopia [Unknown]
  - Blood pressure increased [Unknown]
  - Mixed anxiety and depressive disorder [Unknown]
  - Constipation [Unknown]
  - Temporomandibular pain and dysfunction syndrome [Unknown]
  - Neck pain [Unknown]
  - Pain in extremity [Unknown]
  - Hyperhidrosis [Unknown]
  - Gait disturbance [Unknown]
  - Blood pressure increased [Unknown]
  - Thirst [Unknown]
  - Pollakiuria [Unknown]
  - Chest pain [Unknown]
  - Stress [Unknown]
  - Weight decreased [Unknown]
  - Ear discomfort [Unknown]
  - Headache [Unknown]
  - Alopecia [Unknown]
  - Fatigue [Unknown]
  - Off label use [Unknown]
  - Economic problem [Not Recovered/Not Resolved]
  - Product quality issue [Unknown]

NARRATIVE: CASE EVENT DATE: 20200101
